FAERS Safety Report 9797605 (Version 2)
Quarter: 2014Q1

REPORT INFORMATION
  Report Type: Spontaneous
  Country: US (occurrence: US)
  Receive Date: 20140106
  Receipt Date: 20140127
  Transmission Date: 20141002
  Serious: Yes (Other)
  Sender: FDA-Public Use
  Company Number: US-AMGEN-USASP2014000236

PATIENT
  Age: 49 Year
  Sex: Female

DRUGS (7)
  1. ENBREL [Suspect]
     Indication: PSORIASIS
     Dosage: 50 MG, QWK
     Route: 058
     Dates: start: 20031102, end: 201303
  2. AMBIEN [Concomitant]
     Dosage: UNK
  3. CELEXA                             /00582602/ [Concomitant]
     Dosage: UNK
  4. XANAX [Concomitant]
     Dosage: UNK
  5. ZANAFLEX [Concomitant]
     Dosage: UNK
  6. TACLONEX [Concomitant]
     Dosage: UNK
  7. TRIAMCINOLONE [Concomitant]
     Dosage: UNK

REACTIONS (5)
  - Metastases to lymph nodes [Not Recovered/Not Resolved]
  - Cardiac pacemaker insertion [Unknown]
  - Metastatic malignant melanoma [Not Recovered/Not Resolved]
  - Osteoarthritis [Unknown]
  - Rebound psoriasis [Unknown]
